FAERS Safety Report 8425783 (Version 2)
Quarter: 2013Q2

REPORT INFORMATION
  Report Type: Spontaneous
  Country: US (occurrence: US)
  Receive Date: 20120224
  Receipt Date: 20130426
  Transmission Date: 20140414
  Serious: Yes (Other)
  Sender: FDA-Public Use
  Company Number: CHPA2012US003110

PATIENT
  Age: 47 Year
  Sex: Female

DRUGS (2)
  1. EXCEDRIN MIGRAINE [Suspect]
     Indication: MIGRAINE
     Dosage: 2 DF MORN/NIGHT
     Route: 048
     Dates: end: 201201
  2. AMBIEN [Concomitant]
     Dosage: 12.5

REACTIONS (6)
  - Loss of consciousness [Recovered/Resolved]
  - Chest pain [Recovered/Resolved]
  - Dizziness [Unknown]
  - Heart rate irregular [Unknown]
  - Insomnia [Recovered/Resolved]
  - Overdose [Unknown]
